FAERS Safety Report 7575585-7 (Version None)
Quarter: 2011Q2

REPORT INFORMATION
  Report Type: 
  Country: None (occurrence: None)
  Receive Date: 20110627
  Receipt Date: 20110616
  Transmission Date: 20111010
  Serious: Yes (Hospitalization, Congenital Anomaly, Other)
  Sender: FDA-Public Use
  Company Number: PHHY2011JP55923

PATIENT

DRUGS (2)
  1. PREDNISOLONE [Suspect]
     Dosage: UNK
     Route: 064
  2. NSAID'S [Suspect]
     Dosage: UNK
     Route: 064

REACTIONS (7)
  - CARDIOMEGALY [None]
  - MATERNAL DRUGS AFFECTING FOETUS [None]
  - PREMATURE BABY [None]
  - DRUG EXPOSURE DURING PREGNANCY [None]
  - PULMONARY HYPERTENSION [None]
  - DUCTUS ARTERIOSUS STENOSIS FOETAL [None]
  - TRICUSPID VALVE INCOMPETENCE [None]
